FAERS Safety Report 4632667-7 (Version None)
Quarter: 2005Q2

REPORT INFORMATION
  Report Type: 
  Country: None (occurrence: None)
  Receive Date: 20050331
  Receipt Date: 20041013
  Transmission Date: 20051028
  Serious: Yes (Other)
  Sender: FDA-Public Use
  Company Number: 200414935BCC

PATIENT
  Age: 82 Year
  Sex: Male
  Weight: 65.7716 kg

DRUGS (8)
  1. ALEVE (CAPLET) [Suspect]
     Indication: BACK PAIN
     Dosage: 440 MG, MT, ORAL; 220 MG, BID, ORAL; 220 MG, BID, ORAL
     Route: 048
     Dates: start: 20040601
  2. ALEVE (CAPLET) [Suspect]
     Indication: BACK PAIN
     Dosage: 440 MG, MT, ORAL; 220 MG, BID, ORAL; 220 MG, BID, ORAL
     Route: 048
     Dates: start: 20041001
  3. ASPIRIN [Suspect]
     Dosage: PRN
  4. LISINOPRIL [Concomitant]
  5. HYDROCHLOROTHIAZIDE [Concomitant]
  6. PRILOSEC [Concomitant]
  7. FOSAMAX [Concomitant]
  8. TRIAZOLAM [Concomitant]

REACTIONS (3)
  - ANOREXIA [None]
  - HAEMATOCHEZIA [None]
  - STOMACH DISCOMFORT [None]
